FAERS Safety Report 21642007 (Version 1)
Quarter: 2022Q4

REPORT INFORMATION
  Report Type: Spontaneous
  Country: PT (occurrence: PT)
  Receive Date: 20221125
  Receipt Date: 20221125
  Transmission Date: 20230113
  Serious: No
  Sender: FDA-Public Use
  Company Number: PT-ALKEM LABORATORIES LIMITED-PT-ALKEM-2022-02224

PATIENT
  Sex: Female

DRUGS (1)
  1. OLANZAPINE [Suspect]
     Active Substance: OLANZAPINE
     Indication: Drug use disorder
     Dosage: 5 MILLIGRAM DAILY
     Route: 065

REACTIONS (7)
  - Face oedema [Recovered/Resolved]
  - Visual impairment [Unknown]
  - Apathy [Unknown]
  - Anxiety [Unknown]
  - Irritability [Unknown]
  - Depressed mood [Unknown]
  - Hyponatraemia [Unknown]
